FAERS Safety Report 5885435-2 (Version None)
Quarter: 2008Q3

REPORT INFORMATION
  Report Type: 
  Country: None (occurrence: None)
  Receive Date: 20080916
  Receipt Date: 20080903
  Transmission Date: 20090109
  Serious: Yes (Hospitalization, Other)
  Sender: FDA-Public Use
  Company Number: CA-ELI_LILLY_AND_COMPANY-CA200809000946

PATIENT
  Age: 22 Year
  Sex: Male

DRUGS (8)
  1. ZYPREXA [Suspect]
     Indication: SCHIZOPHRENIA
     Dosage: 2.5 MG, UNK
     Route: 048
  2. ZYPREXA [Suspect]
     Dosage: 10 MG, UNK
     Route: 048
  3. ZYPREXA [Suspect]
     Dosage: 20 MG, UNK
     Route: 048
  4. ZYPREXA [Suspect]
     Dosage: 35 MG, UNK
     Route: 048
  5. CLOZAPINE [Concomitant]
  6. SEROQUEL [Concomitant]
  7. TYLENOL (CAPLET) [Concomitant]
  8. LOXAPINE [Concomitant]

REACTIONS (11)
  - ABNORMAL BEHAVIOUR [None]
  - AGGRESSION [None]
  - COMA [None]
  - DELUSION [None]
  - DEPRESSED MOOD [None]
  - HALLUCINATION [None]
  - HEPATIC FAILURE [None]
  - INCOHERENT [None]
  - MENTAL IMPAIRMENT [None]
  - OVERDOSE [None]
  - RENAL FAILURE [None]
